FAERS Safety Report 12500952 (Version 1)
Quarter: 2016Q2

REPORT INFORMATION
  Report Type: Spontaneous
  Country: ES (occurrence: ES)
  Receive Date: 20160627
  Receipt Date: 20160627
  Transmission Date: 20160815
  Serious: Yes (Other)
  Sender: FDA-Public Use
  Company Number: ES-ABBVIE-16K-144-1657999-00

PATIENT
  Age: 45 Year
  Sex: Female

DRUGS (6)
  1. HUMIRA [Suspect]
     Active Substance: ADALIMUMAB
     Indication: PSORIATIC ARTHROPATHY
  2. ETANERCEPT [Suspect]
     Active Substance: ETANERCEPT
     Indication: PSORIASIS
     Route: 065
     Dates: start: 200903, end: 200906
  3. USTEKINUMAB [Suspect]
     Active Substance: USTEKINUMAB
     Indication: PSORIASIS
     Route: 065
     Dates: start: 20100224, end: 201206
  4. ETANERCEPT [Suspect]
     Active Substance: ETANERCEPT
     Indication: PSORIATIC ARTHROPATHY
     Route: 065
     Dates: start: 200906, end: 20100224
  5. USTEKINUMAB [Suspect]
     Active Substance: USTEKINUMAB
     Indication: PSORIATIC ARTHROPATHY
  6. HUMIRA [Suspect]
     Active Substance: ADALIMUMAB
     Indication: PSORIASIS
     Route: 058
     Dates: start: 200804, end: 200903

REACTIONS (8)
  - Arthralgia [Recovered/Resolved]
  - Drug effect decreased [Recovered/Resolved]
  - Nephrotic syndrome [Unknown]
  - Weight increased [Unknown]
  - Psoriasis [Recovering/Resolving]
  - Myalgia [Recovered/Resolved]
  - Peripheral ischaemia [Unknown]
  - Paraesthesia [Unknown]

NARRATIVE: CASE EVENT DATE: 2009
